FAERS Safety Report 15714554 (Version 1)
Quarter: 2018Q4

REPORT INFORMATION
  Report Type: Spontaneous
  Country: US (occurrence: US)
  Receive Date: 20181212
  Receipt Date: 20181212
  Transmission Date: 20190205
  Serious: Yes (Death)
  Sender: FDA-Public Use
  Company Number: None

PATIENT
  Age: 72 Year
  Sex: Female
  Weight: 63.5 kg

DRUGS (22)
  1. PROCHLORPERAZINE. [Concomitant]
     Active Substance: PROCHLORPERAZINE
  2. VERZENIO [Suspect]
     Active Substance: ABEMACICLIB
     Indication: BREAST CANCER FEMALE
     Route: 048
     Dates: start: 20180921, end: 20181125
  3. TRAZODONE [Concomitant]
     Active Substance: TRAZODONE HYDROCHLORIDE
  4. SYMBICORT [Concomitant]
     Active Substance: BUDESONIDE\FORMOTEROL FUMARATE DIHYDRATE
  5. XGEVA [Concomitant]
     Active Substance: DENOSUMAB
  6. CLONAZEPAM. [Concomitant]
     Active Substance: CLONAZEPAM
  7. CLOPIDOGREL [Concomitant]
     Active Substance: CLOPIDOGREL BISULFATE
  8. PROBIOTIC [Concomitant]
     Active Substance: PROBIOTICS NOS
  9. ALBUTEROL SULFATE. [Concomitant]
     Active Substance: ALBUTEROL SULFATE
  10. FAMOTIDINE. [Concomitant]
     Active Substance: FAMOTIDINE
  11. LETROZOLE. [Concomitant]
     Active Substance: LETROZOLE
  12. ROPINIROLE. [Concomitant]
     Active Substance: ROPINIROLE
  13. NORTRIPTYLINE [Concomitant]
     Active Substance: NORTRIPTYLINE
  14. SENNA LAXATIVE [Concomitant]
     Active Substance: SENNOSIDES
  15. LORAZEPAM. [Concomitant]
     Active Substance: LORAZEPAM
  16. ELIQUIS [Concomitant]
     Active Substance: APIXABAN
  17. SPIRINOLACTONE [Concomitant]
     Active Substance: SPIRONOLACTONE
  18. CALCIUM MAGNESIUM [Concomitant]
     Active Substance: CALCIUM\MAGNESIUM
  19. BELSOMRA [Concomitant]
     Active Substance: SUVOREXANT
  20. SPIRIVA [Concomitant]
     Active Substance: TIOTROPIUM BROMIDE MONOHYDRATE
  21. HEPARIN [Concomitant]
     Active Substance: HEPARIN SODIUM
  22. CHOLECALCIFEROL [Concomitant]
     Active Substance: CHOLECALCIFEROL

REACTIONS (1)
  - Death [None]

NARRATIVE: CASE EVENT DATE: 20181125
